FAERS Safety Report 11859084 (Version 1)
Quarter: 2015Q4

REPORT INFORMATION
  Report Type: Spontaneous
  Country: US (occurrence: US)
  Receive Date: 20151222
  Receipt Date: 20151222
  Transmission Date: 20160305
  Serious: No
  Sender: FDA-Public Use
  Company Number: US-CELGENEUS-USA-2015124137

PATIENT
  Sex: Female

DRUGS (6)
  1. REVLIMID [Suspect]
     Active Substance: LENALIDOMIDE
     Indication: PLASMA CELL MYELOMA
     Route: 048
     Dates: start: 201002
  2. REVLIMID [Suspect]
     Active Substance: LENALIDOMIDE
     Dosage: 5-25MG
     Route: 048
     Dates: start: 201207
  3. REVLIMID [Suspect]
     Active Substance: LENALIDOMIDE
     Route: 048
     Dates: start: 201510
  4. REVLIMID [Suspect]
     Active Substance: LENALIDOMIDE
     Dosage: 10-5MG
     Route: 048
     Dates: start: 201011
  5. REVLIMID [Suspect]
     Active Substance: LENALIDOMIDE
     Dosage: 15-10MG
     Route: 048
     Dates: start: 201202
  6. REVLIMID [Suspect]
     Active Substance: LENALIDOMIDE
     Route: 048
     Dates: start: 201511

REACTIONS (1)
  - Drug intolerance [Unknown]
